FAERS Safety Report 7965468-2 (Version None)
Quarter: 2011Q4

REPORT INFORMATION
  Report Type: 
  Country: None (occurrence: None)
  Receive Date: 20111208
  Receipt Date: 20111202
  Transmission Date: 20120403
  Serious: Yes (Hospitalization)
  Sender: FDA-Public Use
  Company Number: US-ABBOTT-11P-163-0872194-00

PATIENT
  Sex: Male
  Weight: 97.156 kg

DRUGS (14)
  1. HUMIRA [Suspect]
     Dosage: NOT REPORTED
  2. AMBIEN [Concomitant]
     Indication: INSOMNIA
     Dosage: ONCE DAILY AT BEDTIME
  3. MELATONIN [Concomitant]
     Indication: INSOMNIA
  4. SILENOR [Concomitant]
     Indication: INSOMNIA
     Dosage: ONCE DAILY AT BEDTIME
  5. LORTAB [Concomitant]
     Indication: PRODUCT USED FOR UNKNOWN INDICATION
  6. HUMIRA [Suspect]
     Indication: CROHN'S DISEASE
     Dosage: INDUCTION DOSE
     Route: 058
     Dates: start: 20111023
  7. LIALDA [Concomitant]
     Indication: PRODUCT USED FOR UNKNOWN INDICATION
  8. VYVANSE [Concomitant]
     Indication: ATTENTION DEFICIT/HYPERACTIVITY DISORDER
  9. PREDNISONE TAB [Concomitant]
     Indication: PRODUCT USED FOR UNKNOWN INDICATION
     Dosage: WILL START WEANING TOMORROW
  10. MS CONTIN [Concomitant]
     Indication: PRODUCT USED FOR UNKNOWN INDICATION
  11. SAVELLA [Concomitant]
     Indication: FIBROMYALGIA
  12. WELLBUTRIN [Concomitant]
     Indication: DEPRESSION
  13. PHENERGAN [Concomitant]
     Indication: NAUSEA
  14. PROTONIX [Concomitant]
     Indication: GASTROOESOPHAGEAL REFLUX DISEASE
     Route: 048

REACTIONS (4)
  - HAEMATOCHEZIA [None]
  - RECTAL HAEMORRHAGE [None]
  - DIARRHOEA [None]
  - NAUSEA [None]
